FAERS Safety Report 8996780 (Version 1)
Quarter: 2013Q1

REPORT INFORMATION
  Report Type: Spontaneous
  Country: FR (occurrence: FR)
  Receive Date: 20130104
  Receipt Date: 20130104
  Transmission Date: 20140127
  Serious: Yes (Hospitalization, Other)
  Sender: FDA-Public Use
  Company Number: FR-MERCK-1111USA03372

PATIENT
  Age: 15 Year
  Sex: Female

DRUGS (6)
  1. GARDASIL [Suspect]
     Indication: PROPHYLAXIS
     Dates: start: 20101009
  2. GARDASIL [Suspect]
     Dates: start: 20110604
  3. GARDASIL [Suspect]
     Route: 030
     Dates: start: 20110830
  4. NEISVAC-C [Suspect]
     Indication: PROPHYLAXIS
     Route: 030
  5. AERIUS [Suspect]
     Indication: ASTHMA
     Route: 048
  6. VENTOLINE [Suspect]
     Indication: ASTHMA
     Route: 048

REACTIONS (1)
  - Pancreatitis acute [Recovered/Resolved]
